FAERS Safety Report 11861478 (Version 1)
Quarter: 2015Q4

REPORT INFORMATION
  Report Type: Spontaneous
  Country: US (occurrence: US)
  Receive Date: 20151222
  Receipt Date: 20151222
  Transmission Date: 20160305
  Serious: No
  Sender: FDA-Public Use
  Company Number: US-PFIZER INC-2015416834

PATIENT
  Age: 77 Year
  Sex: Female
  Weight: 79.83 kg

DRUGS (3)
  1. ATORVASTATIN CALCIUM. [Suspect]
     Active Substance: ATORVASTATIN CALCIUM
     Indication: BLOOD CHOLESTEROL INCREASED
     Dosage: 20 MG, 1X/DAY
     Route: 048
     Dates: start: 2012, end: 2012
  2. TRAVATAN-Z [Concomitant]
     Indication: INTRAOCULAR PRESSURE INCREASED
  3. TRAVATAN-Z [Concomitant]
     Indication: GLAUCOMA
     Dosage: 0.004%, EYE DROPS, ONCE A DAY

REACTIONS (2)
  - Drug ineffective [Unknown]
  - Abdominal discomfort [Recovered/Resolved]

NARRATIVE: CASE EVENT DATE: 2012
